FAERS Safety Report 4511243-0 (Version None)
Quarter: 2004Q4

REPORT INFORMATION
  Report Type: 
  Country: None (occurrence: None)
  Receive Date: 20041122
  Receipt Date: 20041122
  Transmission Date: 20050328
  Serious: Yes (Life-Threatening)
  Sender: FDA-Public Use
  Company Number: None

PATIENT
  Age: 51 Year
  Sex: Female
  Weight: 63.05 kg

DRUGS (3)
  1. PREMARIN [Suspect]
     Indication: HORMONE REPLACEMENT THERAPY
     Dosage: 1 DAILY
     Dates: start: 20030318, end: 20040903
  2. BEXTRA [Suspect]
     Indication: PAIN
     Dosage: 1 DAILY
     Dates: start: 20040720, end: 20040903
  3. COUMADIN [Concomitant]

REACTIONS (3)
  - ANGER [None]
  - PAIN IN EXTREMITY [None]
  - THROMBOSIS [None]
